FAERS Safety Report 15823013 (Version 2)
Quarter: 2019Q1

REPORT INFORMATION
  Report Type: Spontaneous
  Country: US (occurrence: US)
  Receive Date: 20190114
  Receipt Date: 20190208
  Transmission Date: 20190417
  Serious: No
  Sender: FDA-Public Use
  Company Number: US-PFIZER INC-2019016658

PATIENT
  Age: 69 Year
  Sex: Female
  Weight: 70 kg

DRUGS (1)
  1. IBRANCE [Suspect]
     Active Substance: PALBOCICLIB
     Indication: BREAST CANCER METASTATIC
     Dosage: 125 MG, CYCLIC (D1-D21Q28D)
     Route: 048
     Dates: start: 20180720

REACTIONS (5)
  - Pain in extremity [Unknown]
  - Cough [Unknown]
  - Musculoskeletal pain [Unknown]
  - Arthralgia [Unknown]
  - Rhinorrhoea [Unknown]
